FAERS Safety Report 18192425 (Version 1)
Quarter: 2020Q3

REPORT INFORMATION
  Report Type: Spontaneous
  Country: US (occurrence: US)
  Receive Date: 20200825
  Receipt Date: 20200825
  Transmission Date: 20201103
  Serious: No
  Sender: FDA-Public Use
  Company Number: US-EMCURE PHARMACEUTICALS LTD-2020-EPL-001151

PATIENT

DRUGS (2)
  1. DIFLUNISAL. [Suspect]
     Active Substance: DIFLUNISAL
     Dosage: ONCE A DAY, GOING TO STOP SOON
     Route: 048
  2. DIFLUNISAL. [Suspect]
     Active Substance: DIFLUNISAL
     Indication: EYE INFLAMMATION
     Dosage: UNK, TWICE DAILY AND REDUCED TO ONCE DAILY
     Route: 048
     Dates: start: 20200728

REACTIONS (4)
  - Gastrointestinal pain [Not Recovered/Not Resolved]
  - Off label use [Unknown]
  - Dyspepsia [Recovered/Resolved]
  - Abdominal pain upper [Not Recovered/Not Resolved]

NARRATIVE: CASE EVENT DATE: 20200728
